FAERS Safety Report 6194927-0 (Version None)
Quarter: 2009Q2

REPORT INFORMATION
  Report Type: 
  Country: None (occurrence: None)
  Receive Date: 20090515
  Receipt Date: 20090515
  Transmission Date: 20091009
  Serious: Yes (Hospitalization, Disabling)
  Sender: FDA-Public Use
  Company Number: None

PATIENT
  Age: 10 Year
  Sex: Male
  Weight: 31.7518 kg

DRUGS (2)
  1. CHILDREN'S MOTRIN [Suspect]
     Indication: PNEUMONIA MYCOPLASMAL
     Dates: start: 20081022, end: 20081031
  2. ZITHROMAX [Suspect]
     Indication: PNEUMONIA MYCOPLASMAL
     Dates: start: 20081030, end: 20081031

REACTIONS (2)
  - COUGH [None]
  - STEVENS-JOHNSON SYNDROME [None]
